FAERS Safety Report 18098375 (Version 5)
Quarter: 2024Q4

REPORT INFORMATION
  Report Type: Spontaneous
  Country: US (occurrence: US)
  Receive Date: 20200731
  Receipt Date: 20241223
  Transmission Date: 20250115
  Serious: Yes (Hospitalization, Other)
  Sender: PFIZER
  Company Number: US-PFIZER INC-2020289231

PATIENT
  Age: 67 Year
  Sex: Female
  Weight: 80.68 kg

DRUGS (3)
  1. XELJANZ [Suspect]
     Active Substance: TOFACITINIB CITRATE
     Indication: Colitis ulcerative
     Dosage: 10 MG, 2X/DAY
     Route: 048
     Dates: start: 201903
  2. XELJANZ [Suspect]
     Active Substance: TOFACITINIB CITRATE
     Dosage: 10 MG, 2X/DAY
     Dates: start: 201905
  3. XELJANZ [Suspect]
     Active Substance: TOFACITINIB CITRATE
     Dosage: 5 MG, 2X/DAY
     Dates: start: 201905

REACTIONS (6)
  - Transient ischaemic attack [Unknown]
  - Colitis ulcerative [Unknown]
  - Vertebral artery stenosis [Unknown]
  - Carotid artery aneurysm [Unknown]
  - Product selection error [Unknown]
  - Therapeutic response unexpected [Unknown]
